FAERS Safety Report 18092730 (Version 1)
Quarter: 2020Q3

REPORT INFORMATION
  Report Type: Spontaneous
  Country: US (occurrence: US)
  Receive Date: 20200730
  Receipt Date: 20200730
  Transmission Date: 20201103
  Serious: No
  Sender: FDA-Public Use
  Company Number: US-BAYER-2020-151350

PATIENT
  Sex: Female

DRUGS (2)
  1. MIRENA [Suspect]
     Active Substance: LEVONORGESTREL
     Dosage: 20 ?G PER DAY CONTINUOUSLY
     Route: 015
  2. ORILISSA [Concomitant]
     Active Substance: ELAGOLIX SODIUM
     Indication: ENDOMETRIOSIS

REACTIONS (4)
  - Weight increased [None]
  - Depression [None]
  - Mental disorder [None]
  - Anxiety [None]
